FAERS Safety Report 7461498-8 (Version None)
Quarter: 2011Q2

REPORT INFORMATION
  Report Type: 
  Country: None (occurrence: None)
  Receive Date: 20110506
  Receipt Date: 20110426
  Transmission Date: 20111010
  Serious: Yes (Hospitalization)
  Sender: FDA-Public Use
  Company Number: US-US-EMD SERONO, INC.-7036649

PATIENT
  Sex: Female
  Weight: 101 kg

DRUGS (7)
  1. RANITIDINE [Concomitant]
  2. TIZANIDINE [Concomitant]
  3. MULTI-VITAMINS [Concomitant]
  4. REBIF [Suspect]
     Indication: MULTIPLE SCLEROSIS
     Route: 058
     Dates: start: 20100901, end: 20110314
  5. B12 SUPPLEMENT [Concomitant]
  6. ASPIRIN [Concomitant]
  7. TRIAMPTERINE [Concomitant]

REACTIONS (6)
  - PANCREATITIS [None]
  - INFLUENZA LIKE ILLNESS [None]
  - INJECTION SITE HAEMATOMA [None]
  - LIVER DISORDER [None]
  - HEPATIC ENZYME INCREASED [None]
  - CHOLELITHIASIS [None]
